FAERS Safety Report 9198462 (Version 1)
Quarter: 2013Q1

REPORT INFORMATION
  Report Type: Spontaneous
  Country: US (occurrence: None)
  Receive Date: 20130327
  Receipt Date: 20130327
  Transmission Date: 20140127
  Serious: Yes (Other)
  Sender: FDA-Public Use
  Company Number: None

PATIENT
  Age: 42 Year
  Sex: Female
  Weight: 64.41 kg

DRUGS (1)
  1. LOTRISONE [Suspect]
     Indication: RASH
     Dosage: 45 G APPLY LIGHTLY TO AREA  2 X^S PER DAY TOP
     Dates: start: 20130318, end: 20130321

REACTIONS (6)
  - Migraine [None]
  - Headache [None]
  - Disorientation [None]
  - Balance disorder [None]
  - Brain oedema [None]
  - No therapeutic response [None]
